APPROVED DRUG PRODUCT: CILOSTAZOL
Active Ingredient: CILOSTAZOL
Strength: 50MG
Dosage Form/Route: TABLET;ORAL
Application: A077030 | Product #001 | TE Code: AB
Applicant: APOTEX INC
Approved: Dec 10, 2004 | RLD: No | RS: No | Type: RX